FAERS Safety Report 5738688-5 (Version None)
Quarter: 2008Q2

REPORT INFORMATION
  Report Type: 
  Country: None (occurrence: None)
  Receive Date: 20080514
  Receipt Date: 20080514
  Transmission Date: 20081010
  Serious: Yes (Life-Threatening, Hospitalization)
  Sender: FDA-Public Use
  Company Number: None

PATIENT
  Age: 54 Year
  Sex: Male
  Weight: 72.1 kg

DRUGS (17)
  1. ZOSYN [Suspect]
     Dosage: 3.375 GM Q8 H 7DA IV
     Route: 042
  2. PERCOCET [Concomitant]
  3. PROBALANCE TUBE FEEDING [Concomitant]
  4. COUMADIN [Concomitant]
  5. ALDACTONE [Concomitant]
  6. LEXAPRO [Concomitant]
  7. PROBIOTIC [Concomitant]
  8. LANOXIN [Concomitant]
  9. SYNTHROID [Concomitant]
  10. REGLAN [Concomitant]
  11. PREVACID [Concomitant]
  12. LASIX [Concomitant]
  13. LOPRESSOR [Concomitant]
  14. FOLIC ACID [Concomitant]
  15. KLONOPIN [Concomitant]
  16. VANCOMYCIN [Concomitant]
  17. LANTUS [Concomitant]

REACTIONS (4)
  - CARDIO-RESPIRATORY ARREST [None]
  - CONVULSION [None]
  - ORAL PRURITUS [None]
  - PRURITUS [None]
